FAERS Safety Report 15836225 (Version 1)
Quarter: 2019Q1

REPORT INFORMATION
  Report Type: Spontaneous
  Country: US (occurrence: US)
  Receive Date: 20190117
  Receipt Date: 20190117
  Transmission Date: 20190417
  Serious: Yes (Death)
  Sender: FDA-Public Use
  Company Number: US-INSYS THERAPEUTICS, INC-INS201901-000247

PATIENT
  Age: 83 Year
  Sex: Female

DRUGS (8)
  1. CARISOPRODOL. [Suspect]
     Active Substance: CARISOPRODOL
     Route: 048
     Dates: start: 2017
  2. FENTANYL. [Suspect]
     Active Substance: FENTANYL
     Route: 062
     Dates: start: 2017
  3. BACLOFEN. [Suspect]
     Active Substance: BACLOFEN
     Route: 048
     Dates: start: 2017
  4. CARISOPRODOL. [Suspect]
     Active Substance: CARISOPRODOL
     Route: 062
     Dates: start: 2017
  5. BACLOFEN. [Suspect]
     Active Substance: BACLOFEN
     Route: 062
     Dates: start: 2017
  6. TAPENTADOL [Suspect]
     Active Substance: TAPENTADOL
     Route: 062
     Dates: start: 2017
  7. FENTANYL. [Suspect]
     Active Substance: FENTANYL
     Indication: PRODUCT USED FOR UNKNOWN INDICATION
     Route: 048
     Dates: start: 2017
  8. TAPENTADOL [Suspect]
     Active Substance: TAPENTADOL
     Route: 048
     Dates: start: 2017

REACTIONS (2)
  - Death [Fatal]
  - Incorrect route of product administration [Unknown]

NARRATIVE: CASE EVENT DATE: 2017
